FAERS Safety Report 12491239 (Version 3)
Quarter: 2016Q4

REPORT INFORMATION
  Report Type: Spontaneous
  Country: US (occurrence: US)
  Receive Date: 20160623
  Receipt Date: 20161114
  Transmission Date: 20170207
  Serious: Yes (Other)
  Sender: FDA-Public Use
  Company Number: US-ASTRAZENECA-2016SE66455

PATIENT
  Age: 964 Month
  Sex: Female
  Weight: 72.6 kg

DRUGS (20)
  1. IBRANCE [Suspect]
     Active Substance: PALBOCICLIB
     Indication: BREAST CANCER METASTATIC
     Route: 048
     Dates: start: 201603, end: 201607
  2. CYANOCOBALAMIN. [Concomitant]
     Active Substance: CYANOCOBALAMIN
     Dosage: 1,000 MCG/ML
  3. PROCHLORPERAZINE MALEATE. [Concomitant]
     Active Substance: PROCHLORPERAZINE MALEATE
     Dosage: 10.0MG UNKNOWN
  4. BENZAPERIL [Concomitant]
  5. CARVEDILOL. [Concomitant]
     Active Substance: CARVEDILOL
     Dosage: 12.5MG UNKNOWN
  6. HYDROCHLOROTHIAZIDE. [Concomitant]
     Active Substance: HYDROCHLOROTHIAZIDE
     Dosage: 25.0MG UNKNOWN
  7. VITAMIN D3 [Concomitant]
     Active Substance: CHOLECALCIFEROL
     Dosage: 2000.0IU UNKNOWN
  8. ARIMIDEX [Suspect]
     Active Substance: ANASTROZOLE
     Indication: BREAST CANCER FEMALE
     Dosage: TEVA (NON AZ)
     Route: 065
  9. OCUVITE [Concomitant]
     Active Substance: VITAMINS
     Dosage: 150 MG-30 UNIT-5 MG-150 150 MG-30 UNIT-5 MG-150
  10. BENZAPERIL [Concomitant]
  11. OMEGA [Concomitant]
     Active Substance: CONVALLARIA MAJALIS\CRATAEGUS LAEVIGATA LEAF\PROXYPHYLLINE
     Dosage: 3 350 MG- 400 MG
  12. TYLENOL [Concomitant]
     Active Substance: ACETAMINOPHEN
     Dosage: 325.0MG UNKNOWN
  13. MEDECINES FOR ACID REFLUX [Concomitant]
     Indication: GASTROOESOPHAGEAL REFLUX DISEASE
  14. GLIPIZIDE. [Concomitant]
     Active Substance: GLIPIZIDE
     Dosage: 10.0MG UNKNOWN
  15. POTASSIUM [Concomitant]
     Active Substance: POTASSIUM
  16. FASLODEX [Suspect]
     Active Substance: FULVESTRANT
     Indication: BREAST CANCER METASTATIC
     Route: 030
     Dates: start: 201603, end: 20160701
  17. ARIMIDEX [Suspect]
     Active Substance: ANASTROZOLE
     Indication: BREAST CANCER FEMALE
     Route: 048
     Dates: start: 201108, end: 201602
  18. ARIMIDEX [Suspect]
     Active Substance: ANASTROZOLE
     Indication: BREAST CANCER FEMALE
     Dosage: ACCORD (NON AZ)
     Route: 065
  19. FASLODEX [Suspect]
     Active Substance: FULVESTRANT
     Indication: BREAST CANCER METASTATIC
     Route: 030
     Dates: start: 20160506
  20. BENADRYL [Concomitant]
     Active Substance: DIPHENHYDRAMINE HYDROCHLORIDE
     Dosage: 25.0MG UNKNOWN
     Route: 048

REACTIONS (23)
  - Metastases to lymph nodes [Unknown]
  - Muscular weakness [Recovering/Resolving]
  - Hiatus hernia [Unknown]
  - Chest pain [Unknown]
  - Vitamin B12 deficiency [Unknown]
  - Essential hypertension [Unknown]
  - Neurotoxicity [Unknown]
  - Chest wall tumour [Unknown]
  - Metastases to lung [Unknown]
  - Amnesia [Unknown]
  - Post procedural hypothyroidism [Unknown]
  - Pulmonary mass [Unknown]
  - Asthenia [Unknown]
  - Paraesthesia [Recovering/Resolving]
  - Folate deficiency [Unknown]
  - Dysuria [Unknown]
  - Pollakiuria [Unknown]
  - Musculoskeletal stiffness [Unknown]
  - Pain [Unknown]
  - Hypoaesthesia [Unknown]
  - Diabetes mellitus [Unknown]
  - Urinary incontinence [Unknown]
  - Discomfort [Unknown]

NARRATIVE: CASE EVENT DATE: 201602
